FAERS Safety Report 10995005 (Version 2)
Quarter: 2015Q2

REPORT INFORMATION
  Report Type: Report from Study
  Country: CZ (occurrence: CZ)
  Receive Date: 20150407
  Receipt Date: 20150413
  Transmission Date: 20150821
  Serious: Yes (Hospitalization, Other)
  Sender: FDA-Public Use
  Company Number: CZ-GLAXOSMITHKLINE-CZ2015GSK044676

PATIENT
  Age: 75 Year
  Sex: Female
  Weight: 62 kg

DRUGS (8)
  1. AESCIN [Concomitant]
     Indication: OEDEMA PERIPHERAL
     Dosage: 20 MG, TID
     Route: 048
     Dates: start: 20140719
  2. DABRAFENIB [Suspect]
     Active Substance: DABRAFENIB
     Dosage: UNK
     Dates: start: 20150401
  3. TRAMETINIB [Suspect]
     Active Substance: TRAMETINIB
     Indication: METASTATIC MALIGNANT MELANOMA
     Dosage: 2 MG, QD
     Dates: start: 20140825, end: 20150309
  4. RAMIPRIL ACTAVIS [Concomitant]
     Active Substance: RAMIPRIL
     Indication: HYPERTENSION
     Dosage: 2.5 MG, QD
     Route: 048
     Dates: start: 20140201
  5. HYDROCHLOROTHIAZIDE. [Concomitant]
     Active Substance: HYDROCHLOROTHIAZIDE
     Indication: HYPERTENSION
     Dosage: 12.25 MG, QD
     Route: 048
     Dates: start: 20140201
  6. DABRAFENIB [Suspect]
     Active Substance: DABRAFENIB
     Indication: METASTATIC MALIGNANT MELANOMA
     Dosage: 75 MG, UNK
     Dates: start: 20140825, end: 20150309
  7. TRAMETINIB [Suspect]
     Active Substance: TRAMETINIB
     Dosage: UNK
     Dates: start: 20150401
  8. WARFARIN [Concomitant]
     Active Substance: WARFARIN
     Dosage: 3 MG, QD
     Route: 048
     Dates: start: 20120529

REACTIONS (1)
  - Myocardial infarction [Recovered/Resolved]

NARRATIVE: CASE EVENT DATE: 20150305
